FAERS Safety Report 16688916 (Version 1)
Quarter: 2019Q4

REPORT INFORMATION
  Report Type: Spontaneous
  Country: US (occurrence: US)
  Receive Date: 20190809
  Receipt Date: 20190809
  Transmission Date: 20200122
  Serious: Yes (Other)
  Sender: FDA-Public Use
  Company Number: None

PATIENT
  Age: 84 Year
  Sex: Female
  Weight: 67.05 kg

DRUGS (9)
  1. DIOVAN HCT [Concomitant]
     Active Substance: HYDROCHLOROTHIAZIDE\VALSARTAN
  2. FASLODEX [Concomitant]
     Active Substance: FULVESTRANT
  3. IBRANCE [Suspect]
     Active Substance: PALBOCICLIB
     Indication: BREAST CANCER FEMALE
     Route: 048
     Dates: start: 20190712
  4. VITAMIN B12 [Concomitant]
     Active Substance: CYANOCOBALAMIN
  5. CARVEDIOL [Concomitant]
     Active Substance: CARVEDILOL
  6. STRESS B COMPLEX/IRON [Concomitant]
  7. COENZYME Q10 [Concomitant]
     Active Substance: UBIDECARENONE
  8. ASPIRIN. [Concomitant]
     Active Substance: ASPIRIN
  9. FLAXSEED [Concomitant]
     Active Substance: FLAX SEED

REACTIONS (2)
  - Asthenia [None]
  - Chills [None]

NARRATIVE: CASE EVENT DATE: 20190809
